FAERS Safety Report 8231936-1 (Version None)
Quarter: 2012Q1

REPORT INFORMATION
  Report Type: 
  Country: None (occurrence: None)
  Receive Date: 20120323
  Receipt Date: 20120313
  Transmission Date: 20120608
  Serious: Yes (Hospitalization, Disabling, Other)
  Sender: FDA-Public Use
  Company Number: PL-JNJFOC-20120109044

PATIENT
  Sex: Female
  Weight: 61.5 kg

DRUGS (14)
  1. POLOCARD [Concomitant]
     Indication: CEREBROVASCULAR ACCIDENT PROPHYLAXIS
     Route: 048
     Dates: start: 20110917
  2. FOLIC ACID [Concomitant]
     Indication: DRUG THERAPY
     Route: 048
     Dates: start: 20100906
  3. UNKNOWN MEDICATION FOR RHEUMATOID ARTHRITIS [Concomitant]
     Indication: RHEUMATOID ARTHRITIS
     Route: 048
     Dates: start: 20100906, end: 20120101
  4. METHYLPREDNISOLONE [Concomitant]
     Indication: RHEUMATOID ARTHRITIS
     Route: 048
     Dates: start: 20100906
  5. GOLIMUMAB [Suspect]
     Indication: RHEUMATOID ARTHRITIS
     Route: 042
     Dates: start: 20120109
  6. METHOTREXATE [Suspect]
     Dates: start: 20120112
  7. GOLIMUMAB [Suspect]
     Route: 042
     Dates: start: 20101116, end: 20110404
  8. METHOTREXATE [Suspect]
     Indication: RHEUMATOID ARTHRITIS
     Dates: start: 20100906, end: 20120111
  9. DICLOBERL [Concomitant]
     Indication: RHEUMATOID ARTHRITIS
     Route: 048
     Dates: start: 20110917
  10. POLPRAZOL [Concomitant]
     Indication: PROPHYLAXIS AGAINST GASTROINTESTINAL ULCER
     Route: 048
     Dates: start: 20110917
  11. DICLOBERL [Concomitant]
     Route: 048
     Dates: start: 20120112
  12. CALCIUM CARBONATE [Concomitant]
     Indication: OSTEOPOROSIS
     Route: 048
     Dates: start: 20100924
  13. GOLIMUMAB [Suspect]
     Route: 042
     Dates: start: 20110505
  14. METHOTREXATE [Suspect]
     Dates: start: 20080501

REACTIONS (1)
  - CHRONIC LYMPHOCYTIC LEUKAEMIA [None]
